FAERS Safety Report 25278326 (Version 2)
Quarter: 2025Q2

REPORT INFORMATION
  Report Type: Spontaneous
  Country: US (occurrence: US)
  Receive Date: 20250507
  Receipt Date: 20250530
  Transmission Date: 20250716
  Serious: No
  Sender: PFIZER
  Company Number: US-PFIZER INC-PV202500054300

PATIENT
  Age: 56 Year
  Sex: Female

DRUGS (3)
  1. FLAGYL [Suspect]
     Active Substance: METRONIDAZOLE\METRONIDAZOLE HYDROCHLORIDE
  2. VIBRAMYCIN [Suspect]
     Active Substance: DOXYCYCLINE
  3. EFFEXOR [Suspect]
     Active Substance: VENLAFAXINE HYDROCHLORIDE

REACTIONS (2)
  - Urticaria [Unknown]
  - Rash [Unknown]
